FAERS Safety Report 6024194-X (Version None)
Quarter: 2008Q4

REPORT INFORMATION
  Report Type: 
  Country: None (occurrence: None)
  Receive Date: 20081224
  Receipt Date: 20081215
  Transmission Date: 20090506
  Serious: Yes (Hospitalization)
  Sender: FDA-Public Use
  Company Number: 2007US001811

PATIENT
  Age: 44 Year
  Sex: Female
  Weight: 54.9 kg

DRUGS (1)
  1. AMEVIVE [Suspect]
     Indication: PSORIASIS
     Dosage: 15 MG, WEEKLY, INTRAMUSCULAR
     Route: 030
     Dates: start: 20051130

REACTIONS (7)
  - CERVIX CANCER METASTATIC [None]
  - FAILURE TO THRIVE [None]
  - GASTROENTERITIS RADIATION [None]
  - HYPOKALAEMIA [None]
  - METASTASES TO LYMPH NODES [None]
  - SQUAMOUS CELL CARCINOMA OF THE CERVIX [None]
  - WEIGHT DECREASED [None]
